FAERS Safety Report 9246168 (Version 3)
Quarter: 2013Q3

REPORT INFORMATION
  Report Type: Spontaneous
  Country: IT (occurrence: IT)
  Receive Date: 20130422
  Receipt Date: 20130930
  Transmission Date: 20140515
  Serious: Yes (Disabling)
  Sender: FDA-Public Use
  Company Number: IT-UCBSA-083199

PATIENT
  Age: 58 Year
  Sex: Male

DRUGS (3)
  1. NEUPRO [Suspect]
     Indication: PARKINSON^S DISEASE
     Dosage: 8 MG/24H, 7 TRANSDERMAL PATCHES
     Route: 062
     Dates: start: 20130103, end: 20130119
  2. SIMENET [Concomitant]
     Indication: PARKINSON^S DISEASE
     Dosage: 100 MG + 25 MG, 50 DIVISIBLE TABLETS
     Route: 048
     Dates: start: 20120301
  3. AZILECT [Concomitant]
     Indication: PARKINSON^S DISEASE
     Dosage: 1 MG, 28 TABLETS
     Route: 048
     Dates: start: 20100101

REACTIONS (2)
  - Dropped head syndrome [Recovered/Resolved]
  - Myopathy [Recovered/Resolved]
